FAERS Safety Report 8490593-X (Version None)
Quarter: 2012Q3

REPORT INFORMATION
  Report Type: 
  Country: None (occurrence: None)
  Receive Date: 20120705
  Receipt Date: 20120627
  Transmission Date: 20120928
  Serious: Yes (Other)
  Sender: FDA-Public Use
  Company Number: JP-ABBOTT-12P-087-0936378-00

PATIENT
  Sex: Female

DRUGS (7)
  1. AMOXICILLIN [Suspect]
     Indication: GASTRITIS
     Route: 048
     Dates: start: 20100915, end: 20100922
  2. RABEPRAZOLE SODIUM [Concomitant]
     Indication: GASTRITIS
     Dates: start: 20100915, end: 20100922
  3. CLARITHROMYCIN [Suspect]
     Indication: GASTRITIS
     Route: 048
     Dates: start: 20100915, end: 20100922
  4. RABEPRAZOLE SODIUM [Concomitant]
     Indication: HELICOBACTER INFECTION
  5. UNKNOWN PRODUCT [Concomitant]
     Indication: PRODUCT USED FOR UNKNOWN INDICATION
     Route: 048
  6. AMOXICILLIN [Suspect]
     Indication: HELICOBACTER INFECTION
  7. CLARITHROMYCIN [Suspect]
     Indication: HELICOBACTER INFECTION

REACTIONS (2)
  - DRUG ERUPTION [None]
  - ERYTHEMA MULTIFORME [None]
